FAERS Safety Report 10027945 (Version 1)
Quarter: 2014Q1

REPORT INFORMATION
  Report Type: Spontaneous
  Country: IL (occurrence: IL)
  Receive Date: 20140321
  Receipt Date: 20140321
  Transmission Date: 20141002
  Serious: Yes (Hospitalization)
  Sender: FDA-Public Use
  Company Number: IL-SA-2014SA032375

PATIENT
  Age: 72 Year
  Sex: Female

DRUGS (3)
  1. MULTAQ [Suspect]
     Indication: VENTRICULAR FIBRILLATION
     Route: 048
  2. LOSARTAN [Concomitant]
     Indication: HYPERTENSION
  3. DIURETICS [Concomitant]

REACTIONS (1)
  - Blood creatinine increased [Recovered/Resolved]
